FAERS Safety Report 4775162-7 (Version None)
Quarter: 2005Q3

REPORT INFORMATION
  Report Type: 
  Country: None (occurrence: None)
  Receive Date: 20050921
  Receipt Date: 20050913
  Transmission Date: 20060218
  Serious: Yes (Death)
  Sender: FDA-Public Use
  Company Number: US-MERCK-0509USA02137

PATIENT
  Age: 49 Year

DRUGS (3)
  1. COGENTIN [Suspect]
     Route: 048
  2. ZIPRASIDONE HYDROCHLORIDE [Suspect]
     Route: 048
  3. MEMANTINE [Suspect]
     Route: 048

REACTIONS (1)
  - COMPLETED SUICIDE [None]
